FAERS Safety Report 8590833-2 (Version None)
Quarter: 2012Q3

REPORT INFORMATION
  Report Type: 
  Country: None (occurrence: None)
  Receive Date: 20120813
  Receipt Date: 20120810
  Transmission Date: 20120928
  Serious: Yes (Hospitalization)
  Sender: FDA-Public Use
  Company Number: DE-AMGEN-DEUCT2012035698

PATIENT
  Age: 62 Year
  Sex: Female
  Weight: 73 kg

DRUGS (4)
  1. PANITUMUMAB [Suspect]
     Indication: RECTAL CANCER
     Dosage: 6 MG/KG, UNK
     Route: 042
     Dates: start: 20111227
  2. NOVALGIN [Concomitant]
     Dosage: UNK UNK, PRN
  3. VALORON [Concomitant]
     Dosage: UNK UNK, PRN
  4. PANTOPRAZOLE [Concomitant]
     Dosage: 40 MG, UNK

REACTIONS (1)
  - FEMALE GENITAL TRACT FISTULA [None]
